FAERS Safety Report 6896987-8 (Version None)
Quarter: 2010Q3

REPORT INFORMATION
  Report Type: 
  Country: None (occurrence: None)
  Receive Date: 20100802
  Receipt Date: 20070309
  Transmission Date: 20110219
  Serious: Yes (Other)
  Sender: FDA-Public Use
  Company Number: US-PFIZER INC-2007012921

PATIENT
  Sex: Female
  Weight: 59 kg

DRUGS (9)
  1. LYRICA [Suspect]
     Indication: NEUROPATHY PERIPHERAL
     Dates: start: 20060101
  2. NEURONTIN [Suspect]
     Indication: NEUROPATHY PERIPHERAL
     Dates: start: 20070117, end: 20070201
  3. ZOCOR [Concomitant]
  4. CYMBALTA [Concomitant]
  5. IBANDRONATE SODIUM [Concomitant]
  6. ACTIVELLA [Concomitant]
  7. LUNESTA [Concomitant]
  8. VOLTAREN [Concomitant]
  9. SINTENYL [Concomitant]

REACTIONS (5)
  - ANAEMIA [None]
  - DRUG INEFFECTIVE [None]
  - FEELING ABNORMAL [None]
  - FOOD CRAVING [None]
  - WEIGHT INCREASED [None]
